FAERS Safety Report 20662136 (Version 1)
Quarter: 2022Q2

REPORT INFORMATION
  Report Type: Spontaneous
  Country: US (occurrence: US)
  Receive Date: 20220401
  Receipt Date: 20220401
  Transmission Date: 20220721
  Serious: Yes (Hospitalization)
  Sender: FDA-Public Use
  Company Number: US-JNJFOC-20220354670

PATIENT
  Age: 79 Year
  Sex: Female

DRUGS (3)
  1. OPSUMIT [Suspect]
     Active Substance: MACITENTAN
     Indication: Product used for unknown indication
     Route: 048
  2. TREPROSTINIL SODIUM [Suspect]
     Active Substance: TREPROSTINIL SODIUM
     Indication: Pulmonary arterial hypertension
     Dosage: 9 BREATHS
     Route: 065
     Dates: start: 20210129
  3. ADCIRCA [Suspect]
     Active Substance: TADALAFIL
     Indication: Product used for unknown indication
     Route: 065

REACTIONS (2)
  - Heart rate increased [Unknown]
  - Tinnitus [Unknown]
